FAERS Safety Report 15458079 (Version 1)
Quarter: 2018Q4

REPORT INFORMATION
  Report Type: Report from Study
  Country: None (occurrence: MX)
  Receive Date: 20181003
  Receipt Date: 20181003
  Transmission Date: 20190204
  Serious: Yes (Disabling)
  Sender: FDA-Public Use
  Company Number: MX-ABBVIE-18K-107-2505147-00

PATIENT
  Age: 82 Year
  Sex: Female
  Weight: 47 kg

DRUGS (1)
  1. HUMIRA [Suspect]
     Active Substance: ADALIMUMAB
     Indication: PRODUCT USED FOR UNKNOWN INDICATION
     Route: 058
     Dates: start: 20180627

REACTIONS (3)
  - Dysstasia [Unknown]
  - Gait disturbance [Unknown]
  - Hypophagia [Unknown]

NARRATIVE: CASE EVENT DATE: 20180917
